FAERS Safety Report 24705924 (Version 2)
Quarter: 2024Q4

REPORT INFORMATION
  Report Type: Spontaneous
  Country: CN (occurrence: CN)
  Receive Date: 20241206
  Receipt Date: 20241210
  Transmission Date: 20250114
  Serious: Yes (Hospitalization, Other)
  Sender: PFIZER
  Company Number: CN-MLMSERVICE-20241125-PI269947-00270-2

PATIENT
  Age: 52 Year
  Sex: Female

DRUGS (5)
  1. METHOTREXATE SODIUM [Suspect]
     Active Substance: METHOTREXATE SODIUM
     Indication: Immune thrombocytopenia
     Dosage: UNK
  2. METHYLPREDNISOLONE [Suspect]
     Active Substance: METHYLPREDNISOLONE
     Indication: Immune thrombocytopenia
     Dosage: 20 MG, 1X/DAY
  3. AZATHIOPRINE [Suspect]
     Active Substance: AZATHIOPRINE
     Indication: Immune thrombocytopenia
     Dosage: UNK
  4. BARICITINIB [Suspect]
     Active Substance: BARICITINIB
     Indication: Immune thrombocytopenia
     Dosage: UNK
  5. CYCLOSPORINE [Suspect]
     Active Substance: CYCLOSPORINE
     Indication: Immune thrombocytopenia
     Dosage: 25MG PER TABLET, TAKEN AS THREE TABLETS IN THE MORNING AND TWO IN THE AFTERNOON

REACTIONS (1)
  - Pulmonary nocardiosis [Recovering/Resolving]

NARRATIVE: CASE EVENT DATE: 20230701
